FAERS Safety Report 6679260-2 (Version None)
Quarter: 2010Q2

REPORT INFORMATION
  Report Type: 
  Country: None (occurrence: None)
  Receive Date: 20100413
  Receipt Date: 20100401
  Transmission Date: 20101027
  Serious: Yes (Other)
  Sender: FDA-Public Use
  Company Number: US-JNJCH-2010008429

PATIENT
  Sex: Female

DRUGS (1)
  1. LISTERINE WHITENING QUICK DISSOLVING STRIPS [Suspect]
     Indication: DENTAL CARE
     Dosage: TEXT:TWO STRIPS ONCE A DAY
     Route: 048
     Dates: start: 20100330, end: 20100401

REACTIONS (4)
  - APPLICATION SITE BURN [None]
  - APPLICATION SITE PAIN [None]
  - ORAL MUCOSAL EXFOLIATION [None]
  - STOMATITIS [None]
